FAERS Safety Report 6476739-3 (Version None)
Quarter: 2009Q4

REPORT INFORMATION
  Report Type: 
  Country: None (occurrence: None)
  Receive Date: 20091207
  Receipt Date: 20091126
  Transmission Date: 20100525
  Serious: Yes (Other)
  Sender: FDA-Public Use
  Company Number: PHHY2009CA44201

PATIENT
  Sex: Male

DRUGS (1)
  1. DIOVAN [Suspect]
     Dosage: 1 TABLET DAILY
     Route: 048

REACTIONS (3)
  - RETINAL OPERATION [None]
  - RETINAL TEAR [None]
  - VISUAL IMPAIRMENT [None]
